FAERS Safety Report 6128688-8 (Version None)
Quarter: 2009Q1

REPORT INFORMATION
  Report Type: 
  Country: None (occurrence: None)
  Receive Date: 20090323
  Receipt Date: 20090309
  Transmission Date: 20090719
  Serious: Yes (Other)
  Sender: FDA-Public Use
  Company Number: JP-PFIZER INC-2009177097

PATIENT

DRUGS (2)
  1. VFEND [Suspect]
     Indication: BRONCHOPULMONARY ASPERGILLOSIS
     Dosage: UNK
     Route: 042
     Dates: start: 20090128, end: 20090203
  2. VFEND [Suspect]
     Dosage: UNK
     Route: 048
     Dates: start: 20090204, end: 20090216

REACTIONS (1)
  - DELIRIUM [None]
